FAERS Safety Report 18653851 (Version 1)
Quarter: 2020Q4

REPORT INFORMATION
  Report Type: Spontaneous
  Country: FR (occurrence: FR)
  Receive Date: 20201223
  Receipt Date: 20201223
  Transmission Date: 20210114
  Serious: Yes (Hospitalization)
  Sender: FDA-Public Use
  Company Number: FR-ACCORD-212009

PATIENT
  Age: 84 Year
  Sex: Male

DRUGS (10)
  1. INNOHEP [Concomitant]
     Active Substance: TINZAPARIN SODIUM
     Route: 058
  2. PURINETHOL [Suspect]
     Active Substance: MERCAPTOPURINE
     Indication: MYELODYSPLASTIC SYNDROME
     Route: 048
     Dates: start: 20200720, end: 20201106
  3. SPECIAFOLDINE [Concomitant]
     Active Substance: FOLIC ACID
     Route: 048
  4. MIRTAZAPINE. [Concomitant]
     Active Substance: MIRTAZAPINE
     Route: 048
  5. METHOTREXATE. [Suspect]
     Active Substance: METHOTREXATE
     Indication: MYELODYSPLASTIC SYNDROME
     Route: 048
     Dates: start: 20200720, end: 20201106
  6. CORTANCYL [Suspect]
     Active Substance: PREDNISONE
     Indication: MYELODYSPLASTIC SYNDROME
     Route: 048
     Dates: start: 20200720, end: 20201106
  7. DESLORATADINE. [Concomitant]
     Active Substance: DESLORATADINE
     Route: 048
  8. PLAVIX [Concomitant]
     Active Substance: CLOPIDOGREL BISULFATE
     Route: 048
  9. PROPYLEX [Concomitant]
     Active Substance: PROPYLTHIOURACIL
     Dosage: STRENGTH: 50 MG
     Route: 048
  10. PANTOPRAZOLE [Concomitant]
     Active Substance: PANTOPRAZOLE
     Route: 048

REACTIONS (3)
  - Pneumocystis jirovecii pneumonia [Recovering/Resolving]
  - Pneumonia pseudomonal [Recovering/Resolving]
  - Off label use [Unknown]

NARRATIVE: CASE EVENT DATE: 20201106
